FAERS Safety Report 15499302 (Version 1)
Quarter: 2018Q4

REPORT INFORMATION
  Report Type: Spontaneous
  Country: US (occurrence: US)
  Receive Date: 20181007
  Receipt Date: 20181007
  Transmission Date: 20190205
  Serious: Yes (Life-Threatening, Hospitalization, Other)
  Sender: FDA-Public Use
  Company Number: None

PATIENT
  Age: 37 Year
  Sex: Female
  Weight: 59.4 kg

DRUGS (8)
  1. FEXOFENADINE-PSEUDOEPHEDRINE 180-240 MG [Concomitant]
     Active Substance: FEXOFENADINE\PSEUDOEPHEDRINE
  2. FLUTICASONE 50 MCG/ACT NASAL SPRAY [Concomitant]
  3. CETIRZINE [Concomitant]
  4. LORATADINE. [Concomitant]
     Active Substance: LORATADINE
  5. TRETINOIN. [Concomitant]
     Active Substance: TRETINOIN
  6. ASBUTEROL [Concomitant]
  7. OCEAN SALINE NASAL SPRAY [Suspect]
     Active Substance: SODIUM CHLORIDE
     Indication: NASAL CONGESTION
     Route: 055
  8. PREDNISONE 10 MG [Concomitant]
     Active Substance: PREDNISONE

REACTIONS (6)
  - Dyspnoea [None]
  - Sneezing [None]
  - Throat irritation [None]
  - Ear congestion [None]
  - Anosmia [None]
  - Cough [None]

NARRATIVE: CASE EVENT DATE: 20180405
